FAERS Safety Report 4341901-2 (Version None)
Quarter: 2004Q2

REPORT INFORMATION
  Report Type: 
  Country: None (occurrence: None)
  Receive Date: 20040413
  Receipt Date: 20040330
  Transmission Date: 20050107
  Serious: Yes (Life-Threatening, Hospitalization, Disabling, Other)
  Sender: FDA-Public Use
  Company Number: US-JNJFOC-20030602288

PATIENT
  Age: 72 Year
  Sex: Female
  Weight: 73.9363 kg

DRUGS (7)
  1. REMICADE [Suspect]
     Indication: RHEUMATOID ARTHRITIS
     Dosage: INTRAVENOUS
     Route: 042
     Dates: start: 20011001, end: 20011201
  2. FOLIC ACID [Concomitant]
  3. METHOTREXATE [Concomitant]
  4. VIOXX [Concomitant]
  5. ULTRAM (TAMADOL HYDROCHLORIDE) [Concomitant]
  6. ELAVIL (AMITRIPTLINE HYDROCHLORIDE) [Concomitant]
  7. CELEXA [Concomitant]

REACTIONS (9)
  - AMNESIA [None]
  - CEREBELLAR ATROPHY [None]
  - CEREBRAL ISCHAEMIA [None]
  - FALL [None]
  - GAIT DISTURBANCE [None]
  - MEMORY IMPAIRMENT [None]
  - PAIN [None]
  - TREMOR [None]
  - TUBERCULOSIS [None]
